FAERS Safety Report 22974139 (Version 2)
Quarter: 2023Q4

REPORT INFORMATION
  Report Type: Spontaneous
  Country: CZ (occurrence: CZ)
  Receive Date: 20230923
  Receipt Date: 20231017
  Transmission Date: 20240110
  Serious: Yes (Other)
  Sender: FDA-Public Use
  Company Number: CZ-CELLTRION INC.-2023CZ018372

PATIENT

DRUGS (17)
  1. INFLIXIMAB [Suspect]
     Active Substance: INFLIXIMAB
     Indication: Colitis ulcerative
     Dosage: STANDARD DOSAGE OF 120 MG, Q2WEEKS
     Route: 058
     Dates: start: 202302
  2. INFLIXIMAB [Suspect]
     Active Substance: INFLIXIMAB
     Dosage: AT HIS NEXT FOLLOW-UP TWO MONTHS LATER (APRIL 2023), THE PATIENT^S CONDITION HAD IMPROVED SIGNIFICAN
     Route: 058
  3. INFLIXIMAB [Suspect]
     Active Substance: INFLIXIMAB
     Dosage: THE PATIENT CONTINUES TO RECEIVE SUBCUTANEOUS IFX AT INTERVALS OF EVERY TWO WEEKS (NOW FOR APPROX. S
     Route: 058
  4. INFLIXIMAB [Suspect]
     Active Substance: INFLIXIMAB
     Indication: Colitis ulcerative
     Dosage: 5 MG/KG, IFX BIOLOGIC THERAPY WAS INITIATED IN THE INTRAVENOUS FORM IN JUNE 2022. PRIOR SWITCH TO S.
     Route: 042
     Dates: start: 202206, end: 202302
  5. INFLIXIMAB [Suspect]
     Active Substance: INFLIXIMAB
     Dosage: HALF A YEAR AFTER INITIATING BIOLOGICAL, THE PATIENT STARTED TO DETERIORATE RAPIDLY DURING THE MAINT
     Route: 042
  6. INFLIXIMAB [Suspect]
     Active Substance: INFLIXIMAB
     Dosage: HE WAS GIVEN A HIGHER DOSE OF IPX, NAMELY 10 MG/KG, AND THE INTERVAL OF ADMINISTRATION WAS REDUCED T
     Route: 042
  7. INFLIXIMAB [Suspect]
     Active Substance: INFLIXIMAB
     Dosage: 5 MG/KG, EVERY 4 WEEKS
     Route: 042
     Dates: start: 202207
  8. INFLIXIMAB [Suspect]
     Active Substance: INFLIXIMAB
     Dosage: 5 MG/KG, EVERY 4 WEEKS
     Route: 042
     Dates: start: 202207
  9. INFLIXIMAB [Suspect]
     Active Substance: INFLIXIMAB
     Dosage: 5 MG/KG, EVERY 4 WEEKS
     Route: 042
     Dates: start: 202208
  10. INFLIXIMAB [Suspect]
     Active Substance: INFLIXIMAB
     Dosage: 5 MG/KG, EVERY 4 WEEKS
     Route: 042
     Dates: start: 202210
  11. INFLIXIMAB [Suspect]
     Active Substance: INFLIXIMAB
     Dosage: 5 MG/KG, EVERY 4 WEEKS
     Route: 042
     Dates: start: 202212
  12. INFLIXIMAB [Suspect]
     Active Substance: INFLIXIMAB
     Dosage: 5 MG/KG, EVERY 4 WEEKS
     Route: 042
     Dates: start: 202201
  13. INFLIXIMAB [Suspect]
     Active Substance: INFLIXIMAB
     Dosage: 5 MG/KG, EVERY 4 WEEKS
     Route: 042
     Dates: start: 202202
  14. ASACOL [Concomitant]
     Active Substance: MESALAMINE
  15. OMEPRAZOLE [Concomitant]
     Active Substance: OMEPRAZOLE
  16. CALCIUM CARBONATE [Concomitant]
     Active Substance: CALCIUM CARBONATE
  17. PURINOL [Concomitant]

REACTIONS (3)
  - Colitis ulcerative [Recovered/Resolved]
  - Intentional product use issue [Unknown]
  - Loss of therapeutic response [Unknown]
